FAERS Safety Report 5478985-4 (Version None)
Quarter: 2007Q4

REPORT INFORMATION
  Report Type: 
  Country: None (occurrence: None)
  Receive Date: 20071006
  Receipt Date: 20070924
  Transmission Date: 20080405
  Serious: Yes (Other)
  Sender: FDA-Public Use
  Company Number: US-PFIZER INC-2007079943

PATIENT
  Sex: Female
  Weight: 64 kg

DRUGS (2)
  1. LYRICA [Suspect]
     Indication: NEURALGIA
  2. ULTRAM [Concomitant]

REACTIONS (5)
  - FAT TISSUE INCREASED [None]
  - INCREASED APPETITE [None]
  - MUSCLE ATROPHY [None]
  - RENAL FUNCTION TEST ABNORMAL [None]
  - WEIGHT INCREASED [None]
